FAERS Safety Report 7361847-5 (Version None)
Quarter: 2011Q1

REPORT INFORMATION
  Report Type: 
  Country: None (occurrence: None)
  Receive Date: 20110318
  Receipt Date: 20110314
  Transmission Date: 20110831
  Serious: Yes (Other)
  Sender: FDA-Public Use
  Company Number: US-ROCHE-765243

PATIENT

DRUGS (2)
  1. ISOTRETINOIN [Suspect]
     Indication: GLIOBLASTOMA MULTIFORME
     Route: 065
  2. VORINOSTAT [Suspect]
     Indication: GLIOBLASTOMA MULTIFORME
     Route: 065

REACTIONS (1)
  - PULMONARY EMBOLISM [None]
